FAERS Safety Report 23827213 (Version 1)
Quarter: 2024Q2

REPORT INFORMATION
  Report Type: Other
  Country: HU (occurrence: None)
  Receive Date: 20240507
  Receipt Date: 20240507
  Transmission Date: 20240716
  Serious: Yes (Other)
  Sender: FDA-Public Use
  Company Number: HU-ROCHE-3556599

PATIENT

DRUGS (1)
  1. RITUXIMAB [Suspect]
     Active Substance: RITUXIMAB
     Indication: Anti-neutrophil cytoplasmic antibody positive vasculitis
     Route: 065

REACTIONS (6)
  - Meningitis [Unknown]
  - Tachycardia [Unknown]
  - Abdominal pain [Unknown]
  - Pain in extremity [Unknown]
  - Loss of consciousness [Unknown]
  - Pseudomonas infection [Unknown]
